FAERS Safety Report 11040320 (Version 2)
Quarter: 2015Q2

REPORT INFORMATION
  Report Type: Spontaneous
  Country: US (occurrence: US)
  Receive Date: 20150416
  Receipt Date: 20150430
  Transmission Date: 20150821
  Serious: No
  Sender: FDA-Public Use
  Company Number: US-ACTELION-A-NJ2015-116149

PATIENT
  Age: 63 Year
  Sex: Female

DRUGS (5)
  1. SILDENAFIL. [Concomitant]
     Active Substance: SILDENAFIL
     Indication: PULMONARY ARTERIAL HYPERTENSION
     Dosage: 20 MG, TID
     Route: 048
     Dates: start: 2012
  2. OXYGEN. [Concomitant]
     Active Substance: OXYGEN
  3. OPSUMIT [Suspect]
     Active Substance: MACITENTAN
     Indication: PULMONARY ARTERIAL HYPERTENSION
     Dosage: 10 MG, QD
     Route: 048
     Dates: start: 201502
  4. LASIX [Concomitant]
     Active Substance: FUROSEMIDE
     Dosage: 40 MG, BID
  5. POTASSIUM [Concomitant]
     Active Substance: POTASSIUM

REACTIONS (9)
  - Cachexia [Unknown]
  - Fatigue [Not Recovered/Not Resolved]
  - Hypoxia [Unknown]
  - Malnutrition [Unknown]
  - Diarrhoea [Unknown]
  - Oedema peripheral [Unknown]
  - Ocular icterus [Not Recovered/Not Resolved]
  - Abnormal loss of weight [Unknown]
  - Decreased appetite [Unknown]

NARRATIVE: CASE EVENT DATE: 201504
